FAERS Safety Report 17107869 (Version 1)
Quarter: 2019Q4

REPORT INFORMATION
  Report Type: Spontaneous
  Country: US (occurrence: US)
  Receive Date: 20191204
  Receipt Date: 20191204
  Transmission Date: 20200122
  Serious: No
  Sender: FDA-Public Use
  Company Number: US-UCBSA-2017042755

PATIENT
  Age: 76 Year
  Sex: Female

DRUGS (4)
  1. L DOPA [Concomitant]
     Active Substance: LEVODOPA
     Indication: PARKINSON^S DISEASE
     Dosage: UNKNOWN DOSE
  2. NEUPRO [Suspect]
     Active Substance: ROTIGOTINE
     Dosage: 4-MG 24-HOUR PATCH
     Route: 062
  3. NEUPRO [Suspect]
     Active Substance: ROTIGOTINE
     Indication: PARKINSON^S DISEASE
     Dosage: 2-MG 24-HOUR PATCH
     Route: 062
     Dates: start: 201510
  4. RASAGILINE. [Concomitant]
     Active Substance: RASAGILINE
     Indication: PARKINSON^S DISEASE
     Dosage: UNKNOWN DOSE

REACTIONS (1)
  - Application site discolouration [Recovering/Resolving]

NARRATIVE: CASE EVENT DATE: 201603
